FAERS Safety Report 7132516-1 (Version None)
Quarter: 2010Q4

REPORT INFORMATION
  Report Type: 
  Country: None (occurrence: None)
  Receive Date: 20101202
  Receipt Date: 20101117
  Transmission Date: 20110411
  Serious: Yes (Hospitalization)
  Sender: FDA-Public Use
  Company Number: GB-ROCHE-744485

PATIENT

DRUGS (3)
  1. DACLIZUMAB [Suspect]
     Route: 065
  2. MYCOPHENOLATE MOFETIL [Suspect]
     Route: 065
  3. TACROLIMUS [Suspect]
     Route: 065

REACTIONS (3)
  - FEMUR FRACTURE [None]
  - LIVER FUNCTION TEST ABNORMAL [None]
  - RESPIRATORY DISTRESS [None]
